FAERS Safety Report 10426180 (Version 1)
Quarter: 2014Q3

REPORT INFORMATION
  Report Type: Spontaneous
  Country: US (occurrence: None)
  Receive Date: 20140725
  Receipt Date: 20140725
  Transmission Date: 20150326
  Serious: No
  Sender: FDA-Public Use
  Company Number: AP356-00649-SPO-US

PATIENT
  Age: 58 Year
  Sex: Female
  Weight: 79.4 kg

DRUGS (4)
  1. LEVOTHYROXINE(LEVOTHYROXINE) (LEVOTHYROXINE SODIUM) [Concomitant]
     Active Substance: LEVOTHYROXINE
  2. BELVIQ [Suspect]
     Active Substance: LORCASERIN HYDROCHLORIDE
     Indication: WEIGHT DECREASED
     Dates: start: 20140326, end: 20140402
  3. VIVELLE DOT(ESTRADIOL) [Concomitant]
  4. FLONASE(FLUTICASONE PROPIONATE) [Concomitant]

REACTIONS (2)
  - Paraesthesia [None]
  - Oedema peripheral [None]

NARRATIVE: CASE EVENT DATE: 20140328
